FAERS Safety Report 10986932 (Version 1)
Quarter: 2015Q2

REPORT INFORMATION
  Report Type: Spontaneous
  Country: GB (occurrence: None)
  Receive Date: 20150402
  Receipt Date: 20150402
  Transmission Date: 20150821
  Serious: Yes (Life-Threatening, Other)
  Sender: FDA-Public Use
  Company Number: 2803413

PATIENT
  Age: 52 Year
  Sex: Female
  Weight: 59 kg

DRUGS (8)
  1. BEVACIZUMAB [Suspect]
     Active Substance: BEVACIZUMAB
     Indication: CERVIX CARCINOMA
     Dosage: 1100 MG MILLIGRAM(S) ( 1 WEEK ) INTRAVENOUS (NOT OTHERWISE SPECIFIED)
     Route: 042
     Dates: start: 20150116
  2. DALTEPARIN SODIUM [Suspect]
     Active Substance: DALTEPARIN SODIUM
     Indication: DEEP VEIN THROMBOSIS
     Dosage: DOSE 15000 (UNIT NOT REPORTED), DAILY SUBCUTANEOUS
     Route: 058
     Dates: start: 20150101
  3. ONDANSETRON [Concomitant]
     Active Substance: ONDANSETRON
  4. CARBOPLATIN. [Suspect]
     Active Substance: CARBOPLATIN
     Indication: CERVIX CARCINOMA
     Dosage: 600 MG MILLIGRAM(S) ( 1 WEEK ) INTRAVENOUS (NOT OTHERWISE SPECIFIED)
     Route: 042
     Dates: start: 20150116
  5. DEXAMETHASONE. [Concomitant]
     Active Substance: DEXAMETHASONE
  6. RANITIDINE [Concomitant]
     Active Substance: RANITIDINE\RANITIDINE HYDROCHLORIDE
  7. DIPHENHYDRAMINE HYDROCHLORIDE. [Suspect]
     Active Substance: DIPHENHYDRAMINE HYDROCHLORIDE
     Indication: CERVIX CARCINOMA
     Dosage: DOSE 312 (UNIT NOT REPORTED) ( 1 WEEK ) INTRAVENOUS (NOT OTHERWISE SPECIFIED)
     Route: 042
     Dates: start: 20150116
  8. DOMPERIDONE [Concomitant]
     Active Substance: DOMPERIDONE

REACTIONS (3)
  - Vaginal haemorrhage [None]
  - Haemoglobin decreased [None]
  - Malaise [None]

NARRATIVE: CASE EVENT DATE: 20150117
